FAERS Safety Report 6574797-9 (Version None)
Quarter: 2010Q1

REPORT INFORMATION
  Report Type: 
  Country: None (occurrence: None)
  Receive Date: 20100209
  Receipt Date: 20100126
  Transmission Date: 20100710
  Serious: Yes (Other)
  Sender: FDA-Public Use
  Company Number: PHEH2009US18031

PATIENT
  Sex: Male
  Weight: 75.737 kg

DRUGS (10)
  1. GLEEVEC [Suspect]
     Indication: CHRONIC MYELOID LEUKAEMIA
     Route: 048
     Dates: start: 20060101
  2. ANTACID TAB [Concomitant]
     Dosage: 500 MG, PRN
  3. ASPIRIN [Concomitant]
     Dosage: 81 MG, QD
  4. ATENOLOL [Concomitant]
     Dosage: 25 MG, QD
  5. GAS-X [Concomitant]
     Dosage: 80 MG, UNK
  6. IMDUR [Concomitant]
     Dosage: 30 MG, QD
  7. LISINOPRIL [Concomitant]
     Dosage: 10 MG, QD
  8. PLAVIX [Concomitant]
     Dosage: 75 MG, QD
  9. PRAVASTATIN SODIUM [Concomitant]
     Dosage: 10 MG, QD
  10. TYLENOL (CAPLET) [Concomitant]
     Dosage: 500 MG, PRN

REACTIONS (3)
  - CATHETERISATION CARDIAC [None]
  - DIARRHOEA [None]
  - WHITE BLOOD CELL COUNT INCREASED [None]
